FAERS Safety Report 17130445 (Version 1)
Quarter: 2019Q4

REPORT INFORMATION
  Report Type: Report from Study
  Country: US (occurrence: US)
  Receive Date: 20191209
  Receipt Date: 20191209
  Transmission Date: 20200122
  Serious: Yes (Death)
  Sender: FDA-Public Use
  Company Number: US-ASTRAZENECA-2019SF75238

PATIENT
  Age: 28925 Day
  Sex: Male
  Weight: 58.1 kg

DRUGS (1)
  1. FASENRA [Suspect]
     Active Substance: BENRALIZUMAB
     Indication: ASTHMA
     Dosage: 30 MG, EVERY FOUR WEEKS FOR THE FIRST THREE DOSES AND THEN EVERY EIGHT WEEKS THEREAFTER
     Route: 058
     Dates: start: 201802, end: 20190211

REACTIONS (6)
  - Death [Fatal]
  - Product dose omission [Not Recovered/Not Resolved]
  - Asthma [Unknown]
  - Hypersensitivity [Unknown]
  - Nasal congestion [Unknown]
  - Oropharyngeal pain [Unknown]

NARRATIVE: CASE EVENT DATE: 20190607
